FAERS Safety Report 9621132 (Version 1)
Quarter: 2013Q4

REPORT INFORMATION
  Report Type: Spontaneous
  Country: US (occurrence: None)
  Receive Date: 20131011
  Receipt Date: 20131011
  Transmission Date: 20140711
  Serious: No
  Sender: FDA-Public Use
  Company Number: None

PATIENT
  Age: 68 Year
  Sex: Female

DRUGS (1)
  1. ENBREL 50MG [Suspect]
     Indication: RHEUMATOID ARTHRITIS
     Route: 058
     Dates: start: 20120809

REACTIONS (5)
  - Muscular weakness [None]
  - Pruritus [None]
  - Chest discomfort [None]
  - Hyperhidrosis [None]
  - Contusion [None]
